FAERS Safety Report 9817840 (Version 1)
Quarter: 2013Q4

REPORT INFORMATION
  Report Type: Spontaneous
  Country: US (occurrence: None)
  Receive Date: 20131223
  Receipt Date: 20131223
  Transmission Date: 20140711
  Serious: No
  Sender: FDA-Public Use
  Company Number: 219668

PATIENT
  Age: 61 Year
  Sex: Male
  Weight: 98.9 kg

DRUGS (4)
  1. PICATO (0.05 %, GEL) [Suspect]
     Dosage: 9 DF (3 DF, 3 IN 1D), TOPICAL
     Route: 061
  2. LISINOPRIL (LISINOPRIL) [Concomitant]
  3. CLARITIN D (NARINE /01202601/) [Concomitant]
  4. MULTIVITAMINS (MULTIVITAMIN) [Concomitant]

REACTIONS (6)
  - Erythema [None]
  - Blister [None]
  - Migraine [None]
  - Oropharyngeal pain [None]
  - Incorrect dose administered [None]
  - Drug dispensing error [None]
